FAERS Safety Report 5950884-0 (Version None)
Quarter: 2008Q4

REPORT INFORMATION
  Report Type: 
  Country: None (occurrence: None)
  Receive Date: 20081112
  Receipt Date: 20081104
  Transmission Date: 20090506
  Serious: Yes (Death, Hospitalization)
  Sender: FDA-Public Use
  Company Number: US-GILEAD-2008-0018829

PATIENT
  Sex: Female
  Weight: 51.756 kg

DRUGS (14)
  1. LETAIRIS [Suspect]
     Indication: PULMONARY ARTERIAL HYPERTENSION
     Route: 048
     Dates: start: 20071116, end: 20081101
  2. PLAVIX [Concomitant]
  3. ALDACTONE [Concomitant]
  4. REVATIO [Concomitant]
  5. ADVAIR DISKUS 100/50 [Concomitant]
  6. ALBUTEROL [Concomitant]
  7. ASPIRIN [Concomitant]
  8. LASIX [Concomitant]
  9. CILOSTAZOL [Concomitant]
  10. CRESTOR [Concomitant]
  11. PREVACID [Concomitant]
  12. ZOLOFT [Concomitant]
  13. FOSAMAX PLUS D [Concomitant]
  14. LANOXIN [Concomitant]

REACTIONS (3)
  - COR PULMONALE [None]
  - RENAL FAILURE ACUTE [None]
  - SEPSIS [None]
